FAERS Safety Report 8906555 (Version 3)
Quarter: 2013Q1

REPORT INFORMATION
  Report Type: Spontaneous
  Country: TW (occurrence: TW)
  Receive Date: 20121114
  Receipt Date: 20130104
  Transmission Date: 20140127
  Serious: Yes (Other)
  Sender: FDA-Public Use
  Company Number: TW-MERCK-1211TWN004835

PATIENT
  Age: 75 Year
  Sex: Female

DRUGS (8)
  1. ZOLINZA [Suspect]
     Indication: SKIN DISORDER
     Dosage: 400 MG, QD
     Route: 048
     Dates: start: 20121031, end: 20121106
  2. MANNITOL [Concomitant]
     Indication: METASTASES TO CENTRAL NERVOUS SYSTEM
     Dosage: 150 ML, QD
     Dates: start: 20121025
  3. BETAMETHASONE [Concomitant]
     Indication: METASTASES TO CENTRAL NERVOUS SYSTEM
     Dosage: 8 MG, QD
     Dates: start: 20121025
  4. INSULIN HUMAN [Concomitant]
     Indication: DIABETES MELLITUS
     Dosage: 16 IU, QD
     Dates: start: 20121028, end: 20121029
  5. INSULIN HUMAN [Concomitant]
     Dosage: 32 IU, QD
     Dates: start: 20121029, end: 20121030
  6. INSULIN HUMAN [Concomitant]
     Dosage: 40 IU, QD
     Dates: start: 20121030, end: 20121031
  7. INSULIN HUMAN [Concomitant]
     Dosage: 46 IU, QD
     Dates: start: 20121031, end: 20121101
  8. INSULIN HUMAN [Concomitant]
     Dosage: 52 IU, QD
     Dates: start: 20121101

REACTIONS (2)
  - Hepatic enzyme increased [Recovering/Resolving]
  - Alanine aminotransferase increased [Recovered/Resolved]
